FAERS Safety Report 15280431 (Version 1)
Quarter: 2018Q3

REPORT INFORMATION
  Report Type: Spontaneous
  Country: US (occurrence: US)
  Receive Date: 20180815
  Receipt Date: 20180815
  Transmission Date: 20181010
  Serious: Yes (Other)
  Sender: FDA-Public Use
  Company Number: US-GLAXOSMITHKLINE-US2018143068

PATIENT
  Age: 64 Year
  Sex: Female

DRUGS (3)
  1. ADVAIR DISKUS [Suspect]
     Active Substance: FLUTICASONE PROPIONATE\SALMETEROL XINAFOATE
     Indication: ASTHMA
     Dosage: 1 PUFF(S), UNK
     Route: 055
     Dates: start: 2000, end: 20170322
  2. VENTOLIN HFA [Suspect]
     Active Substance: ALBUTEROL SULFATE
     Indication: CHRONIC OBSTRUCTIVE PULMONARY DISEASE
     Dosage: 4 PUFF(S), PRN
  3. VENTOLIN HFA [Suspect]
     Active Substance: ALBUTEROL SULFATE
     Indication: ASTHMA
     Dosage: 2 PUFF(S), PRN
     Route: 055
     Dates: start: 2008

REACTIONS (27)
  - Pain [Recovered/Resolved]
  - Arthralgia [Recovered/Resolved]
  - Joint swelling [Recovered/Resolved]
  - Temporomandibular joint syndrome [Recovered/Resolved]
  - Dysphonia [Recovering/Resolving]
  - Chronic obstructive pulmonary disease [Not Recovered/Not Resolved]
  - Vocal cord disorder [Unknown]
  - Knee arthroplasty [Recovered/Resolved]
  - Mood swings [Recovered/Resolved]
  - Temperature intolerance [Recovering/Resolving]
  - Snoring [Recovered/Resolved]
  - Wrong technique in device usage process [Unknown]
  - Drug ineffective [Recovered/Resolved]
  - Overdose [Unknown]
  - Procedural pain [Recovering/Resolving]
  - Joint stiffness [Unknown]
  - Impaired healing [Recovering/Resolving]
  - Vision blurred [Recovered/Resolved]
  - Anger [Recovered/Resolved]
  - Dyskinesia [Recovered/Resolved]
  - Diplopia [Unknown]
  - Hyposmia [Recovering/Resolving]
  - Condition aggravated [Recovered/Resolved]
  - Sleep apnoea syndrome [Recovered/Resolved]
  - Muscle spasms [Recovered/Resolved]
  - Dyspnoea [Unknown]
  - Wrong technique in product usage process [Unknown]

NARRATIVE: CASE EVENT DATE: 2004
